FAERS Safety Report 16599088 (Version 1)
Quarter: 2019Q3

REPORT INFORMATION
  Report Type: Spontaneous
  Country: JP (occurrence: JP)
  Receive Date: 20190719
  Receipt Date: 20190719
  Transmission Date: 20191004
  Serious: Yes (Other)
  Sender: FDA-Public Use
  Company Number: JP-OTSUKA-2019_026429

PATIENT
  Sex: Female

DRUGS (1)
  1. ABILIFY [Suspect]
     Active Substance: ARIPIPRAZOLE
     Indication: PRODUCT USED FOR UNKNOWN INDICATION
     Dosage: UNK
     Route: 048

REACTIONS (6)
  - Paralysis [Recovering/Resolving]
  - Hypoaesthesia [Recovering/Resolving]
  - Tremor [Recovering/Resolving]
  - Speech disorder [Unknown]
  - Gait disturbance [Recovering/Resolving]
  - Treatment noncompliance [Unknown]
